FAERS Safety Report 9283979 (Version 1)
Quarter: 2013Q2

REPORT INFORMATION
  Report Type: Spontaneous
  Country: US (occurrence: US)
  Receive Date: 20130510
  Receipt Date: 20130510
  Transmission Date: 20140414
  Serious: No
  Sender: FDA-Public Use
  Company Number: US-ASTRAZENECA-2013SE29401

PATIENT
  Age: 77 Year
  Sex: Female
  Weight: 59.9 kg

DRUGS (2)
  1. NEXIUM [Suspect]
     Indication: GASTROOESOPHAGEAL REFLUX DISEASE
     Dosage: 40 MG THIS MORNING
     Route: 048
     Dates: start: 20130424
  2. PRAVACHOL [Concomitant]
     Indication: HEART RATE INCREASED

REACTIONS (2)
  - Feeling abnormal [Recovered/Resolved]
  - Asthenia [Recovered/Resolved]
